FAERS Safety Report 16089227 (Version 1)
Quarter: 2019Q1

REPORT INFORMATION
  Report Type: Spontaneous
  Country: US (occurrence: US)
  Receive Date: 20190319
  Receipt Date: 20190319
  Transmission Date: 20190418
  Serious: Yes (Hospitalization, Disabling, Other)
  Sender: FDA-Public Use
  Company Number: US-JNJFOC-20190322124

PATIENT
  Age: 50 Year
  Sex: Female
  Weight: 67.13 kg

DRUGS (1)
  1. INVOKANA [Suspect]
     Active Substance: CANAGLIFLOZIN
     Indication: TYPE 2 DIABETES MELLITUS
     Route: 048

REACTIONS (5)
  - Impaired healing [Unknown]
  - Leg amputation [Unknown]
  - Pathological fracture [Unknown]
  - Diabetic foot [Unknown]
  - Soft tissue necrosis [Unknown]

NARRATIVE: CASE EVENT DATE: 201410
